FAERS Safety Report 15229745 (Version 3)
Quarter: 2019Q3

REPORT INFORMATION
  Report Type: Spontaneous
  Country: US (occurrence: US)
  Receive Date: 20180802
  Receipt Date: 20190806
  Transmission Date: 20191004
  Serious: Yes (Other)
  Sender: FDA-Public Use
  Company Number: US-ACCORD-061903

PATIENT
  Age: 67 Year
  Sex: Female
  Weight: 85.82 kg

DRUGS (24)
  1. PARAPLATIN [Suspect]
     Active Substance: CARBOPLATIN
     Indication: BREAST CANCER
     Dosage: ROUTE: IVPB
     Dates: start: 20150603, end: 20150826
  2. DOCETAXEL EAGLE PHARMACEUTICALS [Concomitant]
     Active Substance: DOCETAXEL
     Dates: start: 20100101
  3. DOCETAXEL ACTAVIS [Concomitant]
     Active Substance: DOCETAXEL
     Dates: start: 20100101
  4. TIMOLOL. [Concomitant]
     Active Substance: TIMOLOL
     Dates: start: 20100101
  5. LISINOPRIL. [Concomitant]
     Active Substance: LISINOPRIL
     Dates: start: 20100101
  6. GABAPENTIN. [Concomitant]
     Active Substance: GABAPENTIN
  7. DOCETAXEL ACCORD [Suspect]
     Active Substance: DOCETAXEL
     Indication: BREAST CANCER
     Dosage: NUMBER OF CYCLES: 05?EVERY THREE WEEKS
     Route: 042
     Dates: start: 20150603, end: 20150826
  8. HERCEPTIN [Suspect]
     Active Substance: TRASTUZUMAB
     Indication: BREAST CANCER
     Route: 042
     Dates: start: 20150603, end: 20150916
  9. PROPAFENONE. [Concomitant]
     Active Substance: PROPAFENONE
     Dates: start: 20100101
  10. DEXAMETHASONE. [Concomitant]
     Active Substance: DEXAMETHASONE
     Route: 042
     Dates: start: 20150603, end: 20150826
  11. HEPARIN LOCK FLUSH [Concomitant]
     Active Substance: HEPARIN SODIUM
     Dosage: DOSE: 500 U/ML
     Route: 042
     Dates: start: 20150603, end: 20150916
  12. DOCETAXEL HOSPIRA [Concomitant]
     Active Substance: DOCETAXEL
     Dates: start: 20100101
  13. VICTOZA [Concomitant]
     Active Substance: LIRAGLUTIDE
     Dates: start: 20100101
  14. SODIUM CHLORIDE. [Concomitant]
     Active Substance: SODIUM CHLORIDE
     Dosage: 0.9 %?DOSE: 1000 CC
     Dates: start: 20150708, end: 20150826
  15. ONDANSETRON [Concomitant]
     Active Substance: ONDANSETRON
     Route: 042
     Dates: start: 20150708, end: 20150708
  16. INSULIN [Concomitant]
     Active Substance: INSULIN NOS
     Dates: start: 20100101
  17. PIOGLITAZONE/PIOGLITAZONE HYDROCHLORIDE [Concomitant]
     Dates: start: 20100101
  18. PALONOSETRON/PALONOSETRON HYDROCHLORIDE [Concomitant]
     Dosage: ROUTE: IVPB
     Dates: start: 20150603, end: 20150826
  19. PEGFILGRASTIM [Concomitant]
     Active Substance: PEGFILGRASTIM
     Route: 058
     Dates: start: 20150604, end: 20150827
  20. ZOLPIDEM [Concomitant]
     Active Substance: ZOLPIDEM TARTRATE
     Dates: start: 20100101
  21. DOCETAXEL SUN PHARMA GLOBAL, INC [Concomitant]
     Dates: start: 20100101
  22. LEVOTHYROXINE. [Concomitant]
     Active Substance: LEVOTHYROXINE
     Dates: start: 20100101
  23. AMITRIPTYLINE [Concomitant]
     Active Substance: AMITRIPTYLINE
     Dates: start: 20100101
  24. TRAMADOL. [Concomitant]
     Active Substance: TRAMADOL
     Dates: start: 20100101

REACTIONS (2)
  - Hair colour changes [Unknown]
  - Alopecia [Recovering/Resolving]

NARRATIVE: CASE EVENT DATE: 201606
